FAERS Safety Report 8611003-5 (Version None)
Quarter: 2012Q3

REPORT INFORMATION
  Report Type: 
  Country: None (occurrence: None)
  Receive Date: 20120822
  Receipt Date: 20120814
  Transmission Date: 20120928
  Serious: Yes (Other)
  Sender: FDA-Public Use
  Company Number: GB-CUBIST-2012S1000698

PATIENT
  Sex: Female

DRUGS (1)
  1. CUBICIN [Suspect]
     Indication: ENDOCARDITIS

REACTIONS (3)
  - CREATININE RENAL CLEARANCE DECREASED [None]
  - INFLAMMATORY MARKER INCREASED [None]
  - DRUG INEFFECTIVE [None]
